FAERS Safety Report 7795505-X (Version None)
Quarter: 2011Q4

REPORT INFORMATION
  Report Type: 
  Country: None (occurrence: None)
  Receive Date: 20111004
  Receipt Date: 20110921
  Transmission Date: 20120403
  Serious: Yes (Hospitalization, Disabling, Other)
  Sender: FDA-Public Use
  Company Number: US-ELI_LILLY_AND_COMPANY-US201011006945

PATIENT
  Sex: Female

DRUGS (4)
  1. MIRALAX [Concomitant]
     Indication: CONSTIPATION
  2. FORTEO [Suspect]
     Dosage: 20 UG, QD
  3. FORTEO [Suspect]
     Dosage: 20 UG, DAILY (1/D)
  4. FORTEO [Suspect]
     Indication: OSTEOPOROSIS
     Dosage: 20 UG, DAILY (1/D)
     Route: 065
     Dates: start: 20101113

REACTIONS (18)
  - ABDOMINAL DISTENSION [None]
  - INJECTION SITE HAEMATOMA [None]
  - DIZZINESS [None]
  - HYPOAESTHESIA EYE [None]
  - FALL [None]
  - CEREBROVASCULAR ACCIDENT [None]
  - DYSARTHRIA [None]
  - ABDOMINAL PAIN UPPER [None]
  - UNDERDOSE [None]
  - ABASIA [None]
  - HYPOAESTHESIA [None]
  - AMNESIA [None]
  - LIMB INJURY [None]
  - UPPER LIMB FRACTURE [None]
  - NEUROLOGICAL SYMPTOM [None]
  - FEELING ABNORMAL [None]
  - MIGRAINE [None]
  - FEMUR FRACTURE [None]
